FAERS Safety Report 12302319 (Version 2)
Quarter: 2016Q4

REPORT INFORMATION
  Report Type: Spontaneous
  Country: US (occurrence: US)
  Receive Date: 20160425
  Receipt Date: 20161215
  Transmission Date: 20170207
  Serious: No
  Sender: FDA-Public Use
  Company Number: US-GLAXOSMITHKLINE-US2016GSK049307

PATIENT
  Sex: Female

DRUGS (1)
  1. BREO ELLIPTA [Suspect]
     Active Substance: FLUTICASONE FUROATE\VILANTEROL TRIFENATATE
     Indication: PRODUCT USED FOR UNKNOWN INDICATION
     Dosage: UNK, U

REACTIONS (6)
  - Drug dose omission [Unknown]
  - Cardiac disorder [Unknown]
  - Bronchitis [Unknown]
  - Cough [Not Recovered/Not Resolved]
  - Asthma [Unknown]
  - Inability to afford medication [Unknown]

NARRATIVE: CASE EVENT DATE: 201603
